FAERS Safety Report 8376057-2 (Version None)
Quarter: 2012Q2

REPORT INFORMATION
  Report Type: 
  Country: None (occurrence: None)
  Receive Date: 20120522
  Receipt Date: 20120514
  Transmission Date: 20120825
  Serious: Yes (Other)
  Sender: FDA-Public Use
  Company Number: PHHY2012MX000516

PATIENT
  Sex: Male

DRUGS (3)
  1. GALVUS [Suspect]
     Dosage: 50 MG, UNK
  2. STALEVO 100 [Suspect]
     Indication: PARKINSON'S DISEASE
     Dosage: 3 DF, (200/100/25 MG) DAILY
  3. EXFORGE [Suspect]
     Dosage: UNK UKN, UNK

REACTIONS (5)
  - GAIT DISTURBANCE [None]
  - DIZZINESS [None]
  - FALL [None]
  - FATIGUE [None]
  - HEADACHE [None]
